FAERS Safety Report 8531496-1 (Version None)
Quarter: 2012Q3

REPORT INFORMATION
  Report Type: 
  Country: None (occurrence: None)
  Receive Date: 20120723
  Receipt Date: 20120709
  Transmission Date: 20120928
  Serious: No
  Sender: FDA-Public Use
  Company Number: US-ASTRAZENECA-2012SE47196

PATIENT
  Age: 71 Year
  Sex: Male

DRUGS (3)
  1. NEXIUM [Suspect]
     Route: 048
  2. SYMBICORT [Suspect]
     Route: 055
  3. TOPROL-XL [Suspect]
     Route: 048

REACTIONS (4)
  - FALL [None]
  - MUSCULOSKELETAL DISORDER [None]
  - ROTATOR CUFF SYNDROME [None]
  - MOBILITY DECREASED [None]
